FAERS Safety Report 10098356 (Version 2)
Quarter: 2014Q2

REPORT INFORMATION
  Report Type: Report from Study
  Country: GB (occurrence: GB)
  Receive Date: 20140423
  Receipt Date: 20140527
  Transmission Date: 20141212
  Serious: Yes (Other)
  Sender: FDA-Public Use
  Company Number: GB-ROCHE-1386031

PATIENT
  Age: 40 Year
  Sex: Female

DRUGS (12)
  1. RITUXIMAB [Suspect]
     Indication: RHEUMATOID ARTHRITIS
     Route: 065
     Dates: start: 20100427
  2. CO-AMOXICLAV [Concomitant]
     Dosage: DURATION-2 DOSES
     Route: 048
  3. METHOTREXATE [Concomitant]
     Dosage: DURATION-28/7
     Route: 058
  4. PARACETAMOL [Concomitant]
     Dosage: DURATION- 14/7
     Route: 065
  5. ASPIRIN [Concomitant]
     Dosage: DURATION- 28/7
     Route: 048
  6. CLOPIDOGREL [Concomitant]
     Dosage: TOTAL DURATION-1 YEAR
     Route: 048
  7. BISOPROLOL [Concomitant]
     Dosage: DURATION- 28/7
     Route: 048
  8. RAMIPRIL [Concomitant]
     Dosage: DURATION-28/7
     Route: 048
  9. ATORVASTATIN [Concomitant]
     Dosage: DURATION-28/7
     Route: 048
  10. LANSOPRAZOLE [Concomitant]
     Dosage: DURATION-28/7
     Route: 048
  11. ADCAL - D3 [Concomitant]
     Dosage: DOSE-1 TABLET?DURATION-28/7
     Route: 048
  12. FOLIC ACID [Concomitant]
     Dosage: DURATION-28/7, (6 DAYS A WEEK, EXCEPT FRIDAY)
     Route: 048

REACTIONS (1)
  - Post procedural myocardial infarction [Unknown]
